FAERS Safety Report 8123671-5 (Version None)
Quarter: 2012Q1

REPORT INFORMATION
  Report Type: 
  Country: None (occurrence: None)
  Receive Date: 20120208
  Receipt Date: 20120206
  Transmission Date: 20120608
  Serious: Yes (Other)
  Sender: FDA-Public Use
  Company Number: PHHY2011HU96670

PATIENT

DRUGS (1)
  1. CARBAMAZEPINE [Suspect]
     Indication: EPILEPSY
     Route: 064

REACTIONS (2)
  - PREMATURE BABY [None]
  - FOETAL EXPOSURE DURING PREGNANCY [None]
